FAERS Safety Report 6857242-5 (Version None)
Quarter: 2010Q3

REPORT INFORMATION
  Report Type: 
  Country: None (occurrence: None)
  Receive Date: 20100719
  Receipt Date: 20100712
  Transmission Date: 20110219
  Serious: Yes (Hospitalization, Other)
  Sender: FDA-Public Use
  Company Number: US-JNJFOC-20100703754

PATIENT
  Sex: Female
  Weight: 83.46 kg

DRUGS (13)
  1. SANDOZ FENTANYL TRANSDERMAL SYSTEM [Suspect]
     Indication: FIBROMYALGIA
     Route: 062
  2. SANDOZ FENTANYL TRANSDERMAL SYSTEM [Suspect]
     Route: 062
  3. SANDOZ FENTANYL TRANSDERMAL SYSTEM [Suspect]
     Indication: SYSTEMIC LUPUS ERYTHEMATOSUS
     Route: 062
  4. SANDOZ FENTANYL TRANSDERMAL SYSTEM [Suspect]
     Route: 062
  5. FENTANYL-100 [Suspect]
     Indication: SYSTEMIC LUPUS ERYTHEMATOSUS
     Route: 062
  6. SYNTHROID [Concomitant]
     Indication: AUTOIMMUNE THYROIDITIS
     Route: 048
  7. PREVACID [Concomitant]
     Indication: HIATUS HERNIA
     Route: 048
  8. PREMARIN [Concomitant]
     Indication: PRODUCT USED FOR UNKNOWN INDICATION
     Route: 061
  9. PREDNISONE [Concomitant]
     Indication: SYSTEMIC LUPUS ERYTHEMATOSUS
     Route: 048
  10. BENADRYL [Concomitant]
     Indication: SYSTEMIC LUPUS ERYTHEMATOSUS
     Route: 048
  11. ATARAX [Concomitant]
     Indication: SYSTEMIC LUPUS ERYTHEMATOSUS
     Route: 048
  12. IMITREX [Concomitant]
     Indication: SYSTEMIC LUPUS ERYTHEMATOSUS
     Route: 048
  13. KEPPRA [Concomitant]
     Indication: CONVULSION
     Route: 048

REACTIONS (10)
  - ARTHRALGIA [None]
  - CHEST PAIN [None]
  - CONVULSION [None]
  - DIVERTICULITIS [None]
  - FIBROMYALGIA [None]
  - HEADACHE [None]
  - INAPPROPRIATE SCHEDULE OF DRUG ADMINISTRATION [None]
  - NAUSEA [None]
  - THERAPY CESSATION [None]
  - WEIGHT DECREASED [None]
